FAERS Safety Report 24580688 (Version 2)
Quarter: 2025Q3

REPORT INFORMATION
  Report Type: Spontaneous
  Country: EU (occurrence: EU)
  Receive Date: 20241105
  Receipt Date: 20250818
  Transmission Date: 20251021
  Serious: Yes (Death, Hospitalization, Other)
  Sender: CLINIGEN
  Company Number: EU-CLINIGEN-CLI2024000077

PATIENT

DRUGS (25)
  1. FOSCARNET SODIUM [Suspect]
     Active Substance: FOSCARNET SODIUM
     Indication: Cytomegalovirus infection reactivation
     Route: 065
  2. CYCLOSPORINE [Suspect]
     Active Substance: CYCLOSPORINE
     Indication: Prophylaxis against graft versus host disease
     Route: 065
  3. GRAFALON [Suspect]
     Active Substance: LAPINE T-LYMPHOCYTE IMMUNE GLOBULIN
     Indication: Bone marrow conditioning regimen
     Route: 065
  4. GRAFALON [Suspect]
     Active Substance: LAPINE T-LYMPHOCYTE IMMUNE GLOBULIN
     Indication: Stem cell transplant
  5. GRAFALON [Suspect]
     Active Substance: LAPINE T-LYMPHOCYTE IMMUNE GLOBULIN
     Indication: Congenital aplastic anaemia
  6. BASILIXIMAB [Suspect]
     Active Substance: BASILIXIMAB
     Indication: Hepatic failure
     Route: 065
  7. BASILIXIMAB [Suspect]
     Active Substance: BASILIXIMAB
     Indication: Immunosuppression
  8. BUSULFAN [Suspect]
     Active Substance: BUSULFAN
     Indication: Congenital aplastic anaemia
     Route: 065
  9. ETANERCEPT [Suspect]
     Active Substance: ETANERCEPT
     Indication: Hepatic failure
     Route: 065
  10. FILGRASTIM [Suspect]
     Active Substance: FILGRASTIM
     Indication: Hepatic failure
     Route: 065
  11. FILGRASTIM [Suspect]
     Active Substance: FILGRASTIM
     Indication: Cytopenia
  12. RUXOLITINIB [Suspect]
     Active Substance: RUXOLITINIB
     Indication: Immunosuppression
     Route: 065
  13. RUXOLITINIB [Suspect]
     Active Substance: RUXOLITINIB
     Indication: Hepatic failure
  14. METHYLPREDNISOLONE [Suspect]
     Active Substance: METHYLPREDNISOLONE
     Indication: Graft versus host disease in skin
     Route: 065
  15. CIPROFLOXACIN [Concomitant]
     Active Substance: CIPROFLOXACIN
     Indication: BK virus infection
     Route: 065
  16. CIPROFLOXACIN [Concomitant]
     Active Substance: CIPROFLOXACIN
     Indication: Viruria
  17. BUDESONIDE [Concomitant]
     Active Substance: BUDESONIDE
     Indication: Product used for unknown indication
     Route: 065
  18. MYCOPHENOLATE MOFETIL [Concomitant]
     Active Substance: MYCOPHENOLATE MOFETIL
     Indication: Prophylaxis against graft versus host disease
     Route: 065
  19. MYCOPHENOLATE MOFETIL [Concomitant]
     Active Substance: MYCOPHENOLATE MOFETIL
     Indication: Stem cell transplant
  20. MYCOPHENOLATE MOFETIL [Concomitant]
     Active Substance: MYCOPHENOLATE MOFETIL
     Indication: Immunosuppressant drug therapy
  21. MYCOPHENOLATE MOFETIL [Concomitant]
     Active Substance: MYCOPHENOLATE MOFETIL
     Indication: Graft versus host disease
  22. MYCOPHENOLATE MOFETIL [Concomitant]
     Active Substance: MYCOPHENOLATE MOFETIL
     Indication: Haematopoietic stem cell mobilisation
  23. MYCOPHENOLATE MOFETIL [Concomitant]
     Active Substance: MYCOPHENOLATE MOFETIL
     Indication: Graft versus host disease in skin
  24. PREDNISONE [Concomitant]
     Active Substance: PREDNISONE
     Indication: Graft versus host disease
     Route: 065
  25. PREDNISONE [Concomitant]
     Active Substance: PREDNISONE
     Indication: Graft versus host disease in skin

REACTIONS (8)
  - Acute kidney injury [Not Recovered/Not Resolved]
  - Disease progression [Fatal]
  - Viral haemorrhagic cystitis [Recovered/Resolved]
  - Microangiopathy [Unknown]
  - BK virus infection [Not Recovered/Not Resolved]
  - Febrile neutropenia [Unknown]
  - Mucosal inflammation [Unknown]
  - Thrombosis [Unknown]
